FAERS Safety Report 5423011-6 (Version None)
Quarter: 2007Q3

REPORT INFORMATION
  Report Type: 
  Country: None (occurrence: None)
  Receive Date: 20070822
  Receipt Date: 20070419
  Transmission Date: 20080115
  Serious: No
  Sender: FDA-Public Use
  Company Number: US-AMGEN-US220410

PATIENT

DRUGS (1)
  1. KEPIVANCE [Suspect]

REACTIONS (4)
  - DRUG INEFFECTIVE [None]
  - RASH ERYTHEMATOUS [None]
  - RASH PRURITIC [None]
  - STOMATITIS [None]
